FAERS Safety Report 8883432 (Version 1)
Quarter: 2012Q4

REPORT INFORMATION
  Report Type: 
  Country: US (occurrence: US)
  Receive Date: 20121102
  Receipt Date: 20121102
  Transmission Date: 20130627
  Serious: Yes (Other)
  Sender: FDA-Public Use
  Company Number: US-ROCHE-1150691

PATIENT

DRUGS (8)
  1. CAPECITABINE [Suspect]
     Indication: COLORECTAL CANCER
     Route: 048
  2. CAPECITABINE [Suspect]
     Indication: NON-SMALL CELL LUNG CANCER
     Route: 048
  3. CAPECITABINE [Suspect]
     Indication: BREAST CANCER
  4. AXITINIB [Suspect]
     Indication: NON-SMALL CELL LUNG CANCER
     Route: 048
  5. AXITINIB [Suspect]
     Indication: BREAST CANCER
  6. AXITINIB [Suspect]
     Indication: COLORECTAL CANCER
  7. PACLITAXEL [Suspect]
     Indication: COLORECTAL CANCER
     Route: 065
  8. DOCETAXEL [Suspect]
     Indication: COLORECTAL CANCER
     Route: 065

REACTIONS (12)
  - Nausea [Unknown]
  - Hypertension [Unknown]
  - Neutropenia [Unknown]
  - Fatigue [Unknown]
  - Diarrhoea [Unknown]
  - Decreased appetite [Unknown]
  - Palmar-plantar erythrodysaesthesia syndrome [Unknown]
  - Vomiting [Unknown]
  - Headache [Unknown]
  - Mucosal inflammation [Unknown]
  - Lymphopenia [Unknown]
  - Dyspnoea [Unknown]
